FAERS Safety Report 6418665-1 (Version None)
Quarter: 2009Q4

REPORT INFORMATION
  Report Type: 
  Country: None (occurrence: None)
  Receive Date: 20091026
  Receipt Date: 20091013
  Transmission Date: 20100525
  Serious: Yes (Disabling)
  Sender: FDA-Public Use
  Company Number: ADR39772009

PATIENT
  Age: 50 Year
  Sex: Male

DRUGS (7)
  1. SIMVASTATIN [Suspect]
     Indication: DIABETES MELLITUS
     Dosage: 20 MG AND 40 MG
     Route: 048
     Dates: start: 20080101, end: 20080101
  2. SIMVASTATIN [Suspect]
     Indication: DIABETES MELLITUS
     Dosage: 20 MG AND 40 MG
     Route: 048
     Dates: end: 20080101
  3. ASPIRIN [Concomitant]
  4. GLIMEPIRIDE [Concomitant]
  5. LEVEMIR [Concomitant]
  6. METFORMIN HCL [Concomitant]
  7. NOVORAPID [Concomitant]

REACTIONS (1)
  - PANIC ATTACK [None]
